FAERS Safety Report 9474967 (Version 1)
Quarter: 2013Q3

REPORT INFORMATION
  Report Type: Report from Study
  Country: VE (occurrence: VE)
  Receive Date: 20130824
  Receipt Date: 20130824
  Transmission Date: 20140515
  Serious: Yes (Other)
  Sender: FDA-Public Use
  Company Number: VE-ABBOTT-13P-178-1137052-00

PATIENT
  Age: 57 Year
  Sex: Female
  Weight: 55 kg

DRUGS (2)
  1. HUMIRA [Suspect]
     Indication: RHEUMATOID ARTHRITIS
     Route: 058
     Dates: start: 20110927, end: 201306
  2. CHEMPROPHYLAXIS TREATMENT [Concomitant]
     Dosage: RECEIVING THERAPY FOR 1 MONTH

REACTIONS (1)
  - Tuberculin test positive [Not Recovered/Not Resolved]
